FAERS Safety Report 6341773-0 (Version None)
Quarter: 2009Q3

REPORT INFORMATION
  Report Type: 
  Country: None (occurrence: None)
  Receive Date: 20090904
  Receipt Date: 20090828
  Transmission Date: 20100115
  Serious: Yes (Death)
  Sender: FDA-Public Use
  Company Number: US-ROCHE-648860

PATIENT
  Sex: Male

DRUGS (1)
  1. XELODA [Suspect]
     Dosage: 2 WEEKS ON, 1 WEEK OFF, HELD FROM 30 JUNE 2009-24 JULY 2009
     Route: 065
     Dates: start: 20090622

REACTIONS (1)
  - MALIGNANT NEOPLASM PROGRESSION [None]
